FAERS Safety Report 8048880-5 (Version None)
Quarter: 2012Q1

REPORT INFORMATION
  Report Type: 
  Country: None (occurrence: None)
  Receive Date: 20120117
  Receipt Date: 20120109
  Transmission Date: 20120608
  Serious: Yes (Hospitalization)
  Sender: FDA-Public Use
  Company Number: US-ASTELLAS-2011US008567

PATIENT
  Sex: Female

DRUGS (1)
  1. VESICARE [Suspect]
     Indication: INCONTINENCE
     Dosage: 10 MG, UNKNOWN/D
     Route: 048
     Dates: start: 20110223

REACTIONS (3)
  - VIRAL INFECTION [None]
  - BLOOD COUNT ABNORMAL [None]
  - LARYNGITIS [None]
